FAERS Safety Report 12670858 (Version 1)
Quarter: 2016Q3

REPORT INFORMATION
  Report Type: Spontaneous
  Country: US (occurrence: None)
  Receive Date: 20160819
  Receipt Date: 20160819
  Transmission Date: 20161109
  Serious: Yes (Death)
  Sender: FDA-Public Use
  Company Number: None

PATIENT
  Age: 18 Year
  Sex: Female
  Weight: 86.18 kg

DRUGS (23)
  1. HEPARIN [Suspect]
     Active Substance: HEPARIN SODIUM
     Indication: PRODUCT USED FOR UNKNOWN INDICATION
     Dosage: 10,000UNITS IN 500MLNS  3/EAY WEK/3HR.EH RIJ TUNNELED CATHETER
     Dates: start: 20140506, end: 20150624
  2. TACROLIMUS. [Suspect]
     Active Substance: TACROLIMUS
  3. CIPROFLOXACIN. [Concomitant]
     Active Substance: CIPROFLOXACIN
  4. RANITIDINE. [Concomitant]
     Active Substance: RANITIDINE
  5. VORICONAZOLE. [Concomitant]
     Active Substance: VORICONAZOLE
  6. FLUDARABINE [Concomitant]
     Active Substance: FLUDARABINE PHOSPHATE
  7. VALGANCICLOVIR-HYDROCHLORIDE [Concomitant]
  8. LISINOPRIL. [Concomitant]
     Active Substance: LISINOPRIL
  9. CYCLOSPORINE. [Suspect]
     Active Substance: CYCLOSPORINE
  10. CASPOFUNGIN [Concomitant]
     Active Substance: CASPOFUNGIN
  11. NORVASC [Concomitant]
     Active Substance: AMLODIPINE BESYLATE
  12. ALEMTUZUMAB [Suspect]
     Active Substance: ALEMTUZUMAB
  13. PREDNISONE. [Suspect]
     Active Substance: PREDNISONE
  14. AMOLDIPINE BESYLATE 5MG LEGACY PHARMACEUTICAL [Concomitant]
     Active Substance: AMLODIPINE BESYLATE
  15. RAPAMUNE [Suspect]
     Active Substance: SIROLIMUS
  16. VALCYTE [Suspect]
     Active Substance: VALGANCICLOVIR HYDROCHLORIDE
  17. GRAFAMUNE [Concomitant]
  18. CYCLOPHOSPHAMIDE. [Concomitant]
     Active Substance: CYCLOPHOSPHAMIDE
  19. TARCO [Concomitant]
  20. CATARPRES TTS-1 [Concomitant]
  21. POTASSIUM CHLORIDE. [Concomitant]
     Active Substance: POTASSIUM CHLORIDE
  22. TAB-A-VITE [Concomitant]
  23. ATENOLOL. [Concomitant]
     Active Substance: ATENOLOL

REACTIONS (7)
  - Overdose [None]
  - Renal failure [None]
  - Pathogen resistance [None]
  - Klebsiella infection [None]
  - Aspergillus infection [None]
  - Liver injury [None]
  - Sepsis [None]

NARRATIVE: CASE EVENT DATE: 20140606
